FAERS Safety Report 6245242-8 (Version None)
Quarter: 2009Q2

REPORT INFORMATION
  Report Type: 
  Country: None (occurrence: None)
  Receive Date: 20090623
  Receipt Date: 20090623
  Transmission Date: 20091009
  Serious: Yes (Life-Threatening, Hospitalization)
  Sender: FDA-Public Use
  Company Number: None

PATIENT
  Age: 28 Year
  Sex: Female
  Weight: 68.0396 kg

DRUGS (2)
  1. YAZ [Suspect]
     Indication: METRORRHAGIA
     Dosage: 1 PILL EACH NIGHT PO
     Route: 048
     Dates: start: 20080603, end: 20080705
  2. YAZ [Suspect]
     Indication: PREMENSTRUAL SYNDROME
     Dosage: 1 PILL EACH NIGHT PO
     Route: 048
     Dates: start: 20080603, end: 20080705

REACTIONS (1)
  - DEEP VEIN THROMBOSIS [None]
